FAERS Safety Report 9482417 (Version 1)
Quarter: 2013Q3

REPORT INFORMATION
  Report Type: Spontaneous
  Country: BR (occurrence: BR)
  Receive Date: 20130828
  Receipt Date: 20130828
  Transmission Date: 20140515
  Serious: Yes (Other)
  Sender: FDA-Public Use
  Company Number: BR-PFIZER INC-2013242561

PATIENT
  Sex: Male

DRUGS (5)
  1. VIAGRA [Suspect]
     Dosage: UNK
  2. AAS [Concomitant]
     Dosage: ONE IN THE LUNCH
  3. CLOPIN [Concomitant]
     Dosage: UNK
  4. VIVACOR [Concomitant]
     Dosage: UNK
  5. SELOZOK [Concomitant]
     Dosage: UNK

REACTIONS (2)
  - Infarction [Unknown]
  - Ventricular hypokinesia [Unknown]
